FAERS Safety Report 10083294 (Version 1)
Quarter: 2014Q2

REPORT INFORMATION
  Report Type: Spontaneous
  Country: US (occurrence: None)
  Receive Date: 20140415
  Receipt Date: 20140415
  Transmission Date: 20141212
  Serious: Yes (Life-Threatening, Hospitalization, Disabling)
  Sender: FDA-Public Use
  Company Number: None

PATIENT
  Age: 81 Year
  Sex: Female
  Weight: 64.86 kg

DRUGS (2)
  1. ACTONEL 40-70 MG MERCK [Suspect]
     Indication: OSTEOPENIA
     Dosage: 40-70 MG 1 TABLET WEEKLY TAKEN BY MOUTH
     Route: 048
     Dates: start: 20051130, end: 20130812
  2. FOSAMAX [Suspect]

REACTIONS (2)
  - Pathological fracture [None]
  - Femur fracture [None]
